FAERS Safety Report 8377975-1 (Version None)
Quarter: 2012Q2

REPORT INFORMATION
  Report Type: 
  Country: None (occurrence: None)
  Receive Date: 20120522
  Receipt Date: 20120515
  Transmission Date: 20120825
  Serious: No
  Sender: FDA-Public Use
  Company Number: US-BAYER-2012-048395

PATIENT
  Sex: Female

DRUGS (1)
  1. MIRENA [Suspect]
     Dosage: 20 MCG/24HR, CONT
     Route: 015
     Dates: start: 20110501

REACTIONS (8)
  - HAIR TEXTURE ABNORMAL [None]
  - PALPITATIONS [None]
  - BLOOD OESTROGEN DECREASED [None]
  - LIBIDO DECREASED [None]
  - METRORRHAGIA [None]
  - DRY SKIN [None]
  - HOT FLUSH [None]
  - ACNE [None]
